FAERS Safety Report 19080634 (Version 8)
Quarter: 2023Q4

REPORT INFORMATION
  Report Type: Spontaneous
  Country: US (occurrence: US)
  Receive Date: 20210331
  Receipt Date: 20231220
  Transmission Date: 20240109
  Serious: Yes (Hospitalization, Other)
  Sender: FDA-Public Use
  Company Number: US-SK LIFE SCIENCE, INC-SKPVG-2021-000430

PATIENT

DRUGS (12)
  1. XCOPRI [Suspect]
     Active Substance: CENOBAMATE
     Indication: Seizure
     Dosage: UNK
     Route: 048
     Dates: start: 20210121
  2. XCOPRI [Suspect]
     Active Substance: CENOBAMATE
     Indication: Epilepsy
     Dosage: 100 MILLIGRAM, QD
     Route: 048
     Dates: start: 202102, end: 202103
  3. XCOPRI [Suspect]
     Active Substance: CENOBAMATE
     Dosage: 100 MILLIGRAM, QD
     Route: 048
     Dates: start: 202103, end: 20210324
  4. XCOPRI [Suspect]
     Active Substance: CENOBAMATE
     Dosage: 150 MILLIGRAM BOTTLE, QD, AT NIGHT
     Route: 048
     Dates: start: 202103
  5. XCOPRI [Suspect]
     Active Substance: CENOBAMATE
     Dosage: 150 MILLIGRAM, QD AT NIGHT
     Route: 048
     Dates: start: 20210326
  6. XCOPRI [Suspect]
     Active Substance: CENOBAMATE
     Dosage: 200 MILLIGRAM, QD, BOTTLE
     Route: 048
  7. XCOPRI [Suspect]
     Active Substance: CENOBAMATE
     Dosage: 250 MILLIGRAM
     Route: 065
     Dates: start: 20210806
  8. XCOPRI [Suspect]
     Active Substance: CENOBAMATE
     Dosage: 400 MILLIGRAM, QD
     Route: 048
  9. VICKS DAYQUIL [Suspect]
     Active Substance: DEXTROMETHORPHAN HYDROBROMIDE\GUAIFENESIN
     Indication: Nasopharyngitis
     Dosage: 1 DOSE, DECONGESTANT
     Route: 065
  10. DILANTIN [Suspect]
     Active Substance: PHENYTOIN
     Indication: Product used for unknown indication
     Dosage: DOSE INCREASED FOR 50 MG MORE
     Route: 065
  11. LITHIUM [Concomitant]
     Active Substance: LITHIUM
     Indication: Product used for unknown indication
     Dosage: UNK
     Route: 065
  12. ZONISAMIDE [Concomitant]
     Active Substance: ZONISAMIDE
     Indication: Product used for unknown indication
     Dosage: UNK UNK, QHS
     Route: 065

REACTIONS (14)
  - Seizure [Recovered/Resolved]
  - Seizure [Recovered/Resolved]
  - Drug level decreased [Recovered/Resolved]
  - Suicidal ideation [Recovered/Resolved]
  - Suicidal ideation [Unknown]
  - Brain fog [Recovered/Resolved]
  - Heart rate increased [Recovered/Resolved]
  - Product dose omission issue [Recovered/Resolved]
  - Dehydration [Recovered/Resolved]
  - Tinnitus [Not Recovered/Not Resolved]
  - Somnolence [Recovered/Resolved]
  - Fatigue [Recovered/Resolved]
  - Irritability [Recovered/Resolved]
  - Nasopharyngitis [Recovered/Resolved]

NARRATIVE: CASE EVENT DATE: 20210301
